FAERS Safety Report 7639068-8 (Version None)
Quarter: 2011Q3

REPORT INFORMATION
  Report Type: 
  Country: None (occurrence: None)
  Receive Date: 20110726
  Receipt Date: 20110726
  Transmission Date: 20111222
  Serious: Yes (Life-Threatening)
  Sender: FDA-Public Use
  Company Number: None

PATIENT
  Age: 62 Year
  Sex: Male
  Weight: 68.8 kg

DRUGS (2)
  1. PANTOPRAZOLE SODIUM [Suspect]
     Indication: GASTRITIS
     Dosage: 40 MG EVERY DAY PO
     Route: 048
     Dates: start: 20090429, end: 20090805
  2. PANTOPRAZOLE SODIUM [Suspect]
     Indication: GASTROOESOPHAGEAL REFLUX DISEASE
     Dosage: 40 MG EVERY DAY PO
     Route: 048
     Dates: start: 20090429, end: 20090805

REACTIONS (3)
  - DYSPNOEA [None]
  - ANGIOEDEMA [None]
  - OEDEMA PERIPHERAL [None]
